FAERS Safety Report 8694675 (Version 2)
Quarter: 2013Q4

REPORT INFORMATION
  Report Type: Spontaneous
  Country: US (occurrence: US)
  Receive Date: 20120731
  Receipt Date: 20131101
  Transmission Date: 20140711
  Serious: No
  Sender: FDA-Public Use
  Company Number: US-009507513-1206USA02945

PATIENT
  Age: 80 Year
  Sex: Male

DRUGS (2)
  1. JANUVIA [Suspect]
     Route: 048
  2. MK-9378 [Concomitant]

REACTIONS (2)
  - Glycosylated haemoglobin increased [Unknown]
  - Blood glucose abnormal [Unknown]
